FAERS Safety Report 8756001 (Version 2)
Quarter: 2012Q4

REPORT INFORMATION
  Report Type: Spontaneous
  Country: US (occurrence: None)
  Receive Date: 20120814
  Receipt Date: 20120831
  Transmission Date: 20130627
  Serious: Yes (Hospitalization)
  Sender: FDA-Public Use
  Company Number: AUR-APL-2012-03244

PATIENT
  Age: 26 Year
  Sex: Female

DRUGS (4)
  1. RISPERIDONE [Suspect]
     Indication: PSYCHIATRIC SYMPTOM
  2. ZIPRASIDONE HYDROCHLORIDE [Suspect]
     Indication: PSYCHIATRIC SYMPTOM
  3. BACLOFEN [Suspect]
     Indication: SPASTICITY
  4. OLANZAPINE [Suspect]
     Indication: PSYCHIATRIC SYMPTOM

REACTIONS (13)
  - Muscle spasticity [None]
  - Condition aggravated [None]
  - Delusion [None]
  - Insomnia [None]
  - Hallucinations, mixed [None]
  - Urinary tract infection [None]
  - Abnormal behaviour [None]
  - Speech disorder [None]
  - Nuclear magnetic resonance imaging brain abnormal [None]
  - Cerebral atrophy [None]
  - Memory impairment [None]
  - Attention deficit/hyperactivity disorder [None]
  - Demyelination [None]
